FAERS Safety Report 7751909-2 (Version None)
Quarter: 2011Q3

REPORT INFORMATION
  Report Type: 
  Country: None (occurrence: None)
  Receive Date: 20110915
  Receipt Date: 20110905
  Transmission Date: 20111222
  Serious: Yes (Hospitalization)
  Sender: FDA-Public Use
  Company Number: DE-JNJFOC-JACGER2000000220

PATIENT
  Age: 54 Year
  Sex: Male
  Weight: 96 kg

DRUGS (36)
  1. HALDOL [Suspect]
     Route: 048
     Dates: start: 19991022, end: 19991025
  2. HALDOL [Suspect]
     Route: 048
     Dates: start: 19991010, end: 19991010
  3. HALDOL [Suspect]
     Route: 048
     Dates: start: 19991007, end: 19991007
  4. HALDOL [Suspect]
     Route: 048
     Dates: start: 19991006, end: 19991006
  5. HALDOL [Suspect]
     Route: 048
     Dates: start: 19991005, end: 19991005
  6. CLOPENTHIXOL HYDROCHLORIDE [Suspect]
     Route: 042
     Dates: start: 19991010, end: 19991010
  7. BRONCHORETARD [Concomitant]
     Route: 048
     Dates: start: 19991004, end: 19991005
  8. HALDOL [Suspect]
     Route: 048
     Dates: start: 19991027, end: 19991031
  9. HALDOL [Suspect]
     Route: 048
     Dates: start: 19991026, end: 19991026
  10. HALDOL [Suspect]
     Route: 048
     Dates: start: 19991101
  11. CLOPENTHIXOL HYDROCHLORIDE [Suspect]
     Route: 042
     Dates: start: 19991009, end: 19991009
  12. HALDOL [Suspect]
     Route: 042
     Dates: start: 19991016, end: 19991017
  13. HALDOL [Suspect]
     Route: 042
     Dates: start: 19991009, end: 19991010
  14. HALDOL [Suspect]
     Route: 048
     Dates: start: 19991021, end: 19991021
  15. ZUCLOPENTHIXOL DECANOATE [Suspect]
     Indication: SCHIZOAFFECTIVE DISORDER
     Route: 048
     Dates: start: 19991012, end: 19991012
  16. HALDOL [Suspect]
     Route: 042
     Dates: start: 19991021, end: 19991021
  17. HALDOL [Suspect]
     Route: 042
     Dates: start: 19991015, end: 19991015
  18. HALDOL [Suspect]
     Route: 048
     Dates: start: 19991009, end: 19991009
  19. HALOPERIDOL DECANOATE [Suspect]
     Indication: SCHIZOAFFECTIVE DISORDER
     Route: 030
     Dates: start: 19990220, end: 19990920
  20. RAMIPRIL [Concomitant]
     Route: 048
     Dates: start: 19991017
  21. HALDOL [Suspect]
     Route: 042
     Dates: start: 19991014, end: 19991014
  22. HALDOL [Suspect]
     Route: 048
     Dates: start: 19991011, end: 19991011
  23. ZUCLOPENTHIXOL DECANOATE [Suspect]
     Route: 048
     Dates: start: 19991007, end: 19991007
  24. ZUCLOPENTHIXOL DECANOATE [Suspect]
     Route: 048
     Dates: start: 19991009, end: 19991009
  25. ENOXAPARIN SODIUM [Concomitant]
     Route: 058
     Dates: start: 19991012, end: 19991020
  26. HALDOL [Suspect]
     Indication: SCHIZOAFFECTIVE DISORDER
     Route: 042
     Dates: start: 19991018, end: 19991018
  27. HALDOL [Suspect]
     Route: 042
     Dates: start: 19991019, end: 19991020
  28. HALDOL [Suspect]
     Route: 042
     Dates: start: 19991011, end: 19991013
  29. HALDOL [Suspect]
     Route: 048
     Dates: start: 19991008, end: 19991008
  30. HALDOL [Suspect]
     Route: 048
     Dates: start: 19991012, end: 19991012
  31. CLOPENTHIXOL HYDROCHLORIDE [Suspect]
     Indication: SCHIZOAFFECTIVE DISORDER
     Route: 042
     Dates: start: 19991011, end: 19991013
  32. ZUCLOPENTHIXOL DECANOATE [Suspect]
     Route: 048
     Dates: start: 19991008, end: 19991008
  33. FLUPHENAZINE [Suspect]
     Indication: SCHIZOAFFECTIVE DISORDER
     Route: 048
     Dates: start: 19991018, end: 19991018
  34. BRONCHORETARD [Concomitant]
     Route: 048
     Dates: end: 19991003
  35. BRONCHORETARD [Concomitant]
     Route: 048
     Dates: start: 19991008, end: 19991013
  36. ZUCLOPENTHIXOL DECANOATE [Suspect]
     Route: 048
     Dates: start: 19991010, end: 19991011

REACTIONS (3)
  - PYREXIA [None]
  - HYPERSENSITIVITY [None]
  - RESPIRATORY FAILURE [None]
